FAERS Safety Report 5418268-1 (Version None)
Quarter: 2007Q3

REPORT INFORMATION
  Report Type: 
  Country: None (occurrence: None)
  Receive Date: 20070817
  Receipt Date: 20070814
  Transmission Date: 20080115
  Serious: Yes (Hospitalization)
  Sender: FDA-Public Use
  Company Number: B0482117A

PATIENT
  Age: 71 Year
  Sex: Male
  Weight: 41 kg

DRUGS (15)
  1. SERETIDE [Suspect]
     Indication: ASTHMA
     Dosage: 500MCG TWICE PER DAY
     Route: 055
     Dates: start: 20070721, end: 20070723
  2. DUROTEP [Concomitant]
     Indication: DRUG USE FOR UNKNOWN INDICATION
     Dosage: 2.5MG PER DAY
     Route: 061
  3. UFT [Concomitant]
     Indication: DRUG USE FOR UNKNOWN INDICATION
     Dosage: 300MG PER DAY
     Route: 048
  4. NAPROXEN [Concomitant]
     Indication: DRUG USE FOR UNKNOWN INDICATION
     Dosage: 400MG PER DAY
     Route: 048
  5. FAMOTIDINE [Concomitant]
     Indication: GASTRITIS
     Dosage: 40MG PER DAY
     Route: 048
  6. GASMOTIN [Concomitant]
     Indication: GASTRITIS
     Dosage: 10MG PER DAY
     Route: 048
     Dates: start: 20070604
  7. HIBON [Concomitant]
     Indication: STOMATITIS
     Dosage: 20MG PER DAY
     Route: 048
     Dates: start: 20070604
  8. MAGMITT [Concomitant]
     Indication: CONSTIPATION
     Dosage: 750MG PER DAY
     Route: 048
  9. PREDONINE [Concomitant]
     Indication: DRUG USE FOR UNKNOWN INDICATION
     Dosage: 10MG PER DAY
     Route: 048
  10. DIGOXIN [Concomitant]
     Indication: CARDIAC FAILURE
     Dosage: .125MG PER DAY
     Route: 048
  11. NITRODERM [Concomitant]
     Indication: ANGINA PECTORIS
     Dosage: 25MG PER DAY
     Route: 061
  12. KN-MG3 [Concomitant]
     Indication: DEHYDRATION
     Dosage: 500ML PER DAY
     Route: 042
     Dates: start: 20070716, end: 20070719
  13. SULPERAZON [Concomitant]
     Dosage: 2G PER DAY
     Route: 042
     Dates: start: 20070720, end: 20070727
  14. UNASYN [Concomitant]
     Route: 042
     Dates: start: 20070709, end: 20070719
  15. UNKNOWN [Concomitant]
     Indication: DEHYDRATION
     Dosage: 500ML PER DAY
     Route: 042
     Dates: start: 20070716, end: 20070727

REACTIONS (1)
  - POLLAKIURIA [None]
